FAERS Safety Report 14848993 (Version 1)
Quarter: 2018Q2

REPORT INFORMATION
  Report Type: Spontaneous
  Country: BR (occurrence: BR)
  Receive Date: 20180504
  Receipt Date: 20180504
  Transmission Date: 20180711
  Serious: Yes (Other)
  Sender: FDA-Public Use
  Company Number: BR-DSJP-DSU-2018-114760

PATIENT

DRUGS (3)
  1. OLMETEC ANLO 20/5 [Suspect]
     Active Substance: AMLODIPINE BESYLATE\OLMESARTAN MEDOXOMIL
     Dosage: 1 DF, QD
     Route: 065
  2. OLMETEC [Suspect]
     Active Substance: OLMESARTAN MEDOXOMIL
     Indication: HYPERTENSION
     Dosage: 40 MG, QD
     Route: 065
  3. OLMETEC ANLO 20/5 [Suspect]
     Active Substance: AMLODIPINE BESYLATE\OLMESARTAN MEDOXOMIL
     Indication: HYPERTENSION
     Dosage: 1 DF, QD
     Route: 065

REACTIONS (11)
  - Drug administration error [Recovered/Resolved]
  - Varicose vein [Unknown]
  - Cardiac disorder [Unknown]
  - Blood pressure decreased [Recovered/Resolved]
  - Bone decalcification [Unknown]
  - Spinal pain [Unknown]
  - Off label use [Recovered/Resolved]
  - Diabetes mellitus [Unknown]
  - Unevaluable event [Not Recovered/Not Resolved]
  - Carotid artery disease [Not Recovered/Not Resolved]
  - Sleep disorder [Unknown]

NARRATIVE: CASE EVENT DATE: 2016
